FAERS Safety Report 24135818 (Version 2)
Quarter: 2024Q3

REPORT INFORMATION
  Report Type: Report from Study
  Country: US (occurrence: US)
  Receive Date: 20240725
  Receipt Date: 20240813
  Transmission Date: 20241016
  Serious: Yes (Hospitalization, Other)
  Sender: ABBVIE
  Company Number: US-ABBVIE-5833441

PATIENT
  Sex: Female

DRUGS (3)
  1. RINVOQ [Suspect]
     Active Substance: UPADACITINIB
     Indication: Crohn^s disease
     Dosage: LAST ADMINISTRATION DATE: 2024
     Route: 048
     Dates: start: 20240623
  2. RINVOQ [Suspect]
     Active Substance: UPADACITINIB
     Indication: Crohn^s disease
     Dosage: LAST ADMIN DATE: 2024, DURATION: 12 WEEKS
     Route: 048
     Dates: start: 20240215
  3. RINVOQ [Suspect]
     Active Substance: UPADACITINIB
     Indication: Crohn^s disease
     Route: 048
     Dates: start: 2024

REACTIONS (13)
  - Staphylococcal sepsis [Not Recovered/Not Resolved]
  - Erythema nodosum [Recovering/Resolving]
  - Cyst [Not Recovered/Not Resolved]
  - Joint swelling [Not Recovered/Not Resolved]
  - Oedema peripheral [Not Recovered/Not Resolved]
  - Pain [Unknown]
  - Pain in extremity [Unknown]
  - Articular calcification [Unknown]
  - Tongue disorder [Unknown]
  - Erythema [Not Recovered/Not Resolved]
  - Rash erythematous [Unknown]
  - Cellulitis [Unknown]
  - Granuloma [Recovering/Resolving]

NARRATIVE: CASE EVENT DATE: 20240101
